FAERS Safety Report 9715129 (Version 2)
Quarter: 2014Q1

REPORT INFORMATION
  Report Type: Spontaneous
  Country: US (occurrence: US)
  Receive Date: 20131126
  Receipt Date: 20140121
  Transmission Date: 20141002
  Serious: Yes (Other)
  Sender: FDA-Public Use
  Company Number: US-GILEAD-2013-0088447

PATIENT
  Age: 75 Year
  Sex: Female

DRUGS (1)
  1. LETAIRIS [Suspect]
     Indication: PULMONARY ARTERIAL HYPERTENSION
     Dosage: 5 MG, QD
     Route: 048
     Dates: start: 20131022, end: 20131114

REACTIONS (7)
  - Deafness [Unknown]
  - Ear discomfort [Unknown]
  - Oxygen saturation abnormal [Unknown]
  - Joint swelling [Unknown]
  - General physical health deterioration [Unknown]
  - Fluid retention [Unknown]
  - Nasal congestion [Unknown]
